FAERS Safety Report 18629125 (Version 1)
Quarter: 2020Q4

REPORT INFORMATION
  Report Type: Spontaneous
  Country: US (occurrence: US)
  Receive Date: 20201217
  Receipt Date: 20201217
  Transmission Date: 20210114
  Serious: No
  Sender: FDA-Public Use
  Company Number: None

PATIENT
  Sex: Female

DRUGS (16)
  1. FUROSEMIDE. [Concomitant]
     Active Substance: FUROSEMIDE
  2. LISINO/HCTZ [Concomitant]
     Active Substance: HYDROCHLOROTHIAZIDE\LISINOPRIL
  3. SIDENAFIL [Concomitant]
     Active Substance: SILDENAFIL
  4. DULOXETINE. [Concomitant]
     Active Substance: DULOXETINE
  5. FOLIC ACID. [Concomitant]
     Active Substance: FOLIC ACID
  6. LISINOPRIL. [Concomitant]
     Active Substance: LISINOPRIL
  7. OXYBUTYNIN. [Concomitant]
     Active Substance: OXYBUTYNIN CHLORIDE
  8. PANTOPRAZOLE [Concomitant]
     Active Substance: PANTOPRAZOLE
  9. METHOTREXATE. [Concomitant]
     Active Substance: METHOTREXATE
  10. OXYCODONE [Concomitant]
     Active Substance: OXYCODONE
  11. PREDNISONE. [Concomitant]
     Active Substance: PREDNISONE
  12. WARFARIN [Concomitant]
     Active Substance: WARFARIN
  13. ENBREL [Suspect]
     Active Substance: ETANERCEPT
     Indication: RHEUMATOID ARTHRITIS
     Dosage: ?          OTHER FREQUENCY:WEEKLY;?
     Route: 058
     Dates: start: 20180518
  14. ATENOLOL. [Concomitant]
     Active Substance: ATENOLOL
  15. LEVOFLOXACIN. [Concomitant]
     Active Substance: LEVOFLOXACIN
  16. TIZANDINE [Concomitant]
     Active Substance: TIZANIDINE

REACTIONS (4)
  - Arthralgia [None]
  - Rectal haemorrhage [None]
  - Pain in extremity [None]
  - Malaise [None]
